FAERS Safety Report 6579816-1 (Version None)
Quarter: 2010Q1

REPORT INFORMATION
  Report Type: 
  Country: None (occurrence: None)
  Receive Date: 20100212
  Receipt Date: 20100209
  Transmission Date: 20100710
  Serious: Yes (Disabling)
  Sender: FDA-Public Use
  Company Number: CH-ROCHE-684573

PATIENT
  Sex: Male

DRUGS (2)
  1. XELODA [Suspect]
     Indication: PANCREATIC CARCINOMA METASTATIC
     Route: 048
     Dates: start: 20091101
  2. HALDOL [Concomitant]

REACTIONS (1)
  - EXTRAPYRAMIDAL DISORDER [None]
